FAERS Safety Report 9647633 (Version 2)
Quarter: 2013Q4

REPORT INFORMATION
  Report Type: Spontaneous
  Country: US (occurrence: US)
  Receive Date: 20131028
  Receipt Date: 20131028
  Transmission Date: 20140711
  Serious: Yes (Hospitalization, Other)
  Sender: FDA-Public Use
  Company Number: US-009507513-2010SP053669

PATIENT
  Age: 70 Year
  Sex: Female

DRUGS (6)
  1. FELBATOL [Suspect]
     Indication: CARBON MONOXIDE POISONING
     Dosage: 1200 MG, QD
     Route: 048
     Dates: start: 2005
  2. INDIAN FRANKINCENSE [Concomitant]
     Indication: PAIN
     Dosage: 3 TABLETS
     Route: 048
  3. DEVILS CLAW [Concomitant]
     Indication: PAIN
     Dosage: 6 DF, QD
     Route: 048
  4. LEVOTHYROXINE SODIUM [Concomitant]
     Indication: HYPOTHYROIDISM
     Dosage: 1 DF, QD
     Route: 048
  5. UBIDECARENONE [Concomitant]
     Indication: SUPPLEMENTATION THERAPY
     Dosage: 1 DF, QD
     Route: 048
  6. VITAMINS (UNSPECIFIED) [Concomitant]
     Indication: SUPPLEMENTATION THERAPY
     Dosage: 1 DF, QD
     Route: 048

REACTIONS (10)
  - Chest discomfort [Unknown]
  - Chest pain [Unknown]
  - Bradycardia [Unknown]
  - Dyspnoea [Unknown]
  - Dehydration [Recovered/Resolved]
  - Amnesia [Unknown]
  - Cardiac disorder [Unknown]
  - Fatigue [Unknown]
  - Asthenia [Unknown]
  - Off label use [Unknown]
